FAERS Safety Report 6540101-5 (Version None)
Quarter: 2010Q1

REPORT INFORMATION
  Report Type: 
  Country: None (occurrence: None)
  Receive Date: 20100115
  Receipt Date: 20100108
  Transmission Date: 20100710
  Serious: Yes (Other)
  Sender: FDA-Public Use
  Company Number: US-AMGEN-QUU384396

PATIENT
  Sex: Male

DRUGS (2)
  1. ENBREL [Suspect]
     Indication: PSORIATIC ARTHROPATHY
     Route: 058
     Dates: start: 20030201
  2. METHOTREXATE [Concomitant]
     Route: 048
     Dates: start: 20030201

REACTIONS (6)
  - MUSCULOSKELETAL STIFFNESS [None]
  - PHARYNGITIS [None]
  - PSORIATIC ARTHROPATHY [None]
  - SUICIDAL IDEATION [None]
  - TRANSAMINASES ABNORMAL [None]
  - VASCULAR INSUFFICIENCY [None]
